FAERS Safety Report 6232484-0 (Version None)
Quarter: 2009Q2

REPORT INFORMATION
  Report Type: 
  Country: None (occurrence: None)
  Receive Date: 20090615
  Receipt Date: 20090615
  Transmission Date: 20091009
  Serious: Yes (Life-Threatening)
  Sender: FDA-Public Use
  Company Number: None

PATIENT
  Age: 50 Year
  Sex: Female
  Weight: 58.514 kg

DRUGS (2)
  1. GABAPENTIN [Suspect]
     Indication: PAIN IN EXTREMITY
     Dosage: 1 WORKING +3 3X/DAY 10 DAYS ; 3 3X/DAY 30 DAYS
  2. GABAPENTIN [Suspect]
     Indication: PAIN IN EXTREMITY
     Dosage: 1 WORKING +3 3X/DAY 10 DAYS ; 3 3X/DAY 30 DAYS

REACTIONS (6)
  - ANGER [None]
  - ANXIETY [None]
  - ASTHENIA [None]
  - CRYING [None]
  - DEPRESSED MOOD [None]
  - MENTAL DISORDER [None]
